FAERS Safety Report 6141219-1 (Version None)
Quarter: 2009Q2

REPORT INFORMATION
  Report Type: 
  Country: None (occurrence: None)
  Receive Date: 20090402
  Receipt Date: 20090330
  Transmission Date: 20091009
  Serious: No
  Sender: FDA-Public Use
  Company Number: JP-ELI_LILLY_AND_COMPANY-JP200902002533

PATIENT
  Sex: Female

DRUGS (4)
  1. ALIMTA [Suspect]
     Indication: PLEURAL MESOTHELIOMA MALIGNANT
     Dosage: 800 MG, UNKNOWN
     Route: 042
     Dates: start: 20081111, end: 20081111
  2. ALIMTA [Suspect]
     Dosage: 350 MG/M2, UNKNOWN
     Route: 042
  3. CARBOPLATIN [Concomitant]
     Indication: PLEURAL MESOTHELIOMA MALIGNANT
     Dosage: 700 MG, UNK
     Route: 042
     Dates: start: 20081111
  4. CYANOCOBALAMIN [Concomitant]
     Dosage: 1000 MG, UNK
     Route: 042
     Dates: start: 20081101

REACTIONS (5)
  - ABDOMINAL PAIN [None]
  - ALANINE AMINOTRANSFERASE INCREASED [None]
  - ASPARTATE AMINOTRANSFERASE INCREASED [None]
  - DIARRHOEA [None]
  - FAECES PALE [None]
